FAERS Safety Report 10046650 (Version 1)
Quarter: 2014Q1

REPORT INFORMATION
  Report Type: Spontaneous
  Country: US (occurrence: US)
  Receive Date: 20140331
  Receipt Date: 20140331
  Transmission Date: 20141002
  Serious: Yes (Hospitalization, Other)
  Sender: FDA-Public Use
  Company Number: US-AMGEN-USASP2014020809

PATIENT
  Age: 57 Year
  Sex: Male

DRUGS (2)
  1. NPLATE [Suspect]
     Indication: IMMUNE THROMBOCYTOPENIC PURPURA
     Dosage: UNK
     Route: 065
     Dates: start: 201303
  2. METHOTREXATE [Concomitant]
     Dosage: UNK
     Route: 065

REACTIONS (2)
  - Myeloid leukaemia [Unknown]
  - Myelodysplastic syndrome [Unknown]
